FAERS Safety Report 7096284-4 (Version None)
Quarter: 2010Q4

REPORT INFORMATION
  Report Type: 
  Country: None (occurrence: None)
  Receive Date: 20101111
  Receipt Date: 20101104
  Transmission Date: 20110411
  Serious: Yes (Hospitalization)
  Sender: FDA-Public Use
  Company Number: JP-BRISTOL-MYERS SQUIBB COMPANY-15378144

PATIENT
  Age: 61 Year
  Sex: Male

DRUGS (9)
  1. ABILIFY [Suspect]
     Indication: SCHIZOPHRENIA
     Dosage: ABILIFY TABS 6MG
     Route: 048
  2. SERENACE [Suspect]
     Route: 065
  3. ITRIZOLE [Suspect]
  4. TASMOLIN [Concomitant]
  5. SEROQUEL [Concomitant]
     Dosage: SEROQUEL TABS
  6. ROHYPNOL [Concomitant]
  7. LEXOTAN [Concomitant]
  8. TEGRETOL [Concomitant]
     Dates: end: 20100922
  9. CHLORPROMAZINE HCL [Concomitant]
     Dates: end: 20100922

REACTIONS (1)
  - DRUG RASH WITH EOSINOPHILIA AND SYSTEMIC SYMPTOMS [None]
